FAERS Safety Report 10556402 (Version 7)
Quarter: 2015Q1

REPORT INFORMATION
  Report Type: Report from Study
  Country: CA (occurrence: CA)
  Receive Date: 20141031
  Receipt Date: 20150128
  Transmission Date: 20150720
  Serious: Yes (Hospitalization, Other)
  Sender: FDA-Public Use
  Company Number: CA-ROCHE-1469167

PATIENT
  Age: 67 Year
  Sex: Female

DRUGS (5)
  1. CAELYX [Suspect]
     Active Substance: DOXORUBICIN HYDROCHLORIDE
     Indication: PRODUCT USED FOR UNKNOWN INDICATION
     Route: 065
     Dates: start: 20110201, end: 20140716
  2. TYLENOL [Concomitant]
     Active Substance: ACETAMINOPHEN
  3. AVASTIN [Suspect]
     Active Substance: BEVACIZUMAB
     Indication: OVARIAN CANCER
     Route: 042
     Dates: start: 20140930, end: 20140930
  4. PAXIL (CANADA) [Concomitant]
  5. ATIVAN [Concomitant]
     Active Substance: LORAZEPAM

REACTIONS (10)
  - Off label use [Unknown]
  - Infection [Recovered/Resolved]
  - Peripheral swelling [Unknown]
  - Abdominal pain [Recovering/Resolving]
  - Ascites [Unknown]
  - Skin exfoliation [Recovering/Resolving]
  - Pain [Unknown]
  - Vomiting [Unknown]
  - Headache [Recovering/Resolving]
  - Fatigue [Unknown]

NARRATIVE: CASE EVENT DATE: 20140930
